FAERS Safety Report 17564557 (Version 1)
Quarter: 2020Q1

REPORT INFORMATION
  Report Type: Spontaneous
  Country: US (occurrence: US)
  Receive Date: 20200313
  Receipt Date: 20200313
  Transmission Date: 20200409
  Serious: Yes (Other)
  Sender: FDA-Public Use
  Company Number: None

PATIENT
  Age: 75 Year
  Sex: Female

DRUGS (1)
  1. IMATINIB MES 400 MG [Suspect]
     Active Substance: IMATINIB MESYLATE
     Indication: GASTROINTESTINAL STROMAL TUMOUR
     Route: 048
     Dates: start: 201906, end: 202003

REACTIONS (3)
  - Pulmonary oedema [None]
  - Swelling [None]
  - Fluid retention [None]

NARRATIVE: CASE EVENT DATE: 20200311
